FAERS Safety Report 20105309 (Version 5)
Quarter: 2022Q1

REPORT INFORMATION
  Report Type: Report from Study
  Country: ES (occurrence: ES)
  Receive Date: 20211124
  Receipt Date: 20220324
  Transmission Date: 20220423
  Serious: Yes (Hospitalization)
  Sender: FDA-Public Use
  Company Number: ES-ABBVIE-21K-144-4171392-00

PATIENT
  Age: 40 Year
  Sex: Male
  Weight: 90 kg

DRUGS (9)
  1. HUMIRA [Suspect]
     Active Substance: ADALIMUMAB
     Indication: Colitis ulcerative
     Route: 058
     Dates: start: 20130924, end: 20200108
  2. HUMIRA [Suspect]
     Active Substance: ADALIMUMAB
     Route: 058
     Dates: start: 20200108, end: 20200522
  3. MESALAMINE [Concomitant]
     Active Substance: MESALAMINE
     Indication: Colitis ulcerative
     Route: 048
     Dates: start: 20130311
  4. MESALAMINE [Concomitant]
     Active Substance: MESALAMINE
     Indication: Colitis ulcerative
     Route: 054
     Dates: start: 20181011
  5. TOFACITINIB [Concomitant]
     Active Substance: TOFACITINIB
     Indication: Colitis ulcerative
     Route: 048
     Dates: start: 20201005, end: 20211203
  6. TOFACITINIB [Concomitant]
     Active Substance: TOFACITINIB
     Route: 048
     Dates: start: 20201130, end: 20211203
  7. TOFACITINIB [Concomitant]
     Active Substance: TOFACITINIB
     Route: 048
     Dates: start: 20211203
  8. FLUVASTATINA [Concomitant]
     Indication: Blood cholesterol
     Route: 048
     Dates: start: 20210305
  9. METAMIZOL [Concomitant]
     Active Substance: METAMIZOLE SODIUM
     Indication: Pyrexia
     Route: 041
     Dates: start: 20211122, end: 20211122

REACTIONS (1)
  - Colitis ulcerative [Recovered/Resolved]

NARRATIVE: CASE EVENT DATE: 20211119
